FAERS Safety Report 7831988-4 (Version None)
Quarter: 2011Q4

REPORT INFORMATION
  Report Type: 
  Country: None (occurrence: None)
  Receive Date: 20111021
  Receipt Date: 20111010
  Transmission Date: 20120403
  Serious: Yes (Death, Other)
  Sender: FDA-Public Use
  Company Number: IE-ELI_LILLY_AND_COMPANY-IE201107004071

PATIENT
  Sex: Female

DRUGS (21)
  1. GALFER [Concomitant]
  2. NEXIUM [Concomitant]
  3. OXYCODONE HCL [Concomitant]
  4. LYRICA [Concomitant]
  5. IBRUPROFEN [Concomitant]
  6. DURAGESIC-100 [Concomitant]
  7. ZYDOL                              /00599202/ [Concomitant]
  8. CALCIUM CARBONATE [Concomitant]
  9. TEGRETOL [Concomitant]
  10. ZOLPIDEM TARTRATE [Concomitant]
  11. KETAMINE HCL [Concomitant]
  12. DELTACORTRIL [Concomitant]
  13. NALOXONE [Concomitant]
  14. DUPHALAC [Concomitant]
  15. FORTEO [Suspect]
     Indication: OSTEOPOROSIS
     Dosage: 20 UG, UNK
     Dates: start: 20110614, end: 20110701
  16. RAMIPRIL [Concomitant]
  17. EXPUTEX [Concomitant]
  18. ATROVENT [Concomitant]
  19. MOVICOL                            /01625101/ [Concomitant]
  20. LEXAPRO [Concomitant]
  21. ACETAMINOPHEN [Concomitant]

REACTIONS (3)
  - CHRONIC OBSTRUCTIVE PULMONARY DISEASE [None]
  - DEPENDENCE [None]
  - CARDIO-RESPIRATORY ARREST [None]
